FAERS Safety Report 7589520-9 (Version None)
Quarter: 2011Q3

REPORT INFORMATION
  Report Type: 
  Country: None (occurrence: None)
  Receive Date: 20110705
  Receipt Date: 20110628
  Transmission Date: 20111222
  Serious: Yes (Other)
  Sender: FDA-Public Use
  Company Number: CO-BAYER-2011-020607

PATIENT
  Age: 34 Year
  Sex: Female
  Weight: 64.6 kg

DRUGS (1)
  1. MIRENA [Suspect]
     Dosage: 20 ?G/D, CONT
     Route: 015

REACTIONS (3)
  - PREGNANCY WITH CONTRACEPTIVE DEVICE [None]
  - UMBILICAL CORD AROUND NECK [None]
  - DEVICE EXPULSION [None]
